FAERS Safety Report 11877934 (Version 3)
Quarter: 2016Q1

REPORT INFORMATION
  Report Type: Spontaneous
  Country: JP (occurrence: JP)
  Receive Date: 20151230
  Receipt Date: 20160129
  Transmission Date: 20160526
  Serious: Yes (Disabling, Other)
  Sender: FDA-Public Use
  Company Number: JP-009507513-1512JPN013184

PATIENT
  Age: 67 Year
  Sex: Male

DRUGS (4)
  1. MK-0000 (348) [Suspect]
     Active Substance: INVESTIGATIONAL PRODUCT
     Dosage: UNK
  2. CLARITHROMYCIN. [Suspect]
     Active Substance: CLARITHROMYCIN
     Indication: MYCOBACTERIAL PERITONITIS
     Dosage: DAILY DOSAGE UNKNOWN
     Route: 048
  3. CEFMETAZOLE SODIUM [Suspect]
     Active Substance: CEFMETAZOLE SODIUM
     Indication: MYCOBACTERIAL PERITONITIS
     Dosage: DAILY DOSAGE UNKNOWN
     Route: 042
  4. TIEPENEM [Suspect]
     Active Substance: CILASTATIN SODIUM\IMIPENEM
     Indication: MYCOBACTERIAL PERITONITIS
     Dosage: DAILY DOSAGE UNKNOWN
     Route: 051

REACTIONS (4)
  - Status epilepticus [Recovering/Resolving]
  - General physical health deterioration [Recovering/Resolving]
  - Encephalopathy [Recovering/Resolving]
  - Activities of daily living impaired [None]
